FAERS Safety Report 7641509-7 (Version None)
Quarter: 2011Q3

REPORT INFORMATION
  Report Type: 
  Country: None (occurrence: None)
  Receive Date: 20110728
  Receipt Date: 20110727
  Transmission Date: 20111222
  Serious: Yes (Other)
  Sender: FDA-Public Use
  Company Number: CA-ABBOTT-11P-028-0841945-00

PATIENT
  Sex: Female
  Weight: 67.646 kg

DRUGS (4)
  1. LEVOTHYROXINE SODIUM [Concomitant]
     Indication: HYPOTHYROIDISM
     Route: 048
     Dates: start: 19860101
  2. HUMIRA [Suspect]
     Route: 058
     Dates: end: 20110721
  3. NAPROXEN [Concomitant]
     Indication: RHEUMATOID ARTHRITIS
     Route: 048
     Dates: start: 20070101
  4. HUMIRA [Suspect]
     Indication: RHEUMATOID ARTHRITIS
     Dosage: UNKNOWN
     Route: 058
     Dates: start: 20040726

REACTIONS (4)
  - VOMITING [None]
  - PHARYNGEAL OEDEMA [None]
  - CHOLELITHIASIS [None]
  - NAUSEA [None]
